FAERS Safety Report 4886329-1 (Version None)
Quarter: 2006Q1

REPORT INFORMATION
  Report Type: 
  Country: None (occurrence: None)
  Receive Date: 20060120
  Receipt Date: 20050201
  Transmission Date: 20060701
  Serious: Yes (Hospitalization, Disabling)
  Sender: FDA-Public Use
  Company Number: US-MERCK-0502USA00178

PATIENT
  Age: 55 Year
  Sex: Female
  Weight: 82 kg

DRUGS (13)
  1. VIOXX [Suspect]
     Indication: MONARTHRITIS
     Route: 048
     Dates: start: 20030101, end: 20040901
  2. VIOXX [Suspect]
     Indication: OSTEOARTHRITIS
     Route: 048
     Dates: start: 20030101, end: 20040901
  3. FUROSEMIDE [Concomitant]
     Route: 065
  4. DIETHYLPROPION HYDROCHLORIDE [Concomitant]
     Route: 065
  5. HYDROCODONE BITARTRATE + ACETAMINOPHEN [Concomitant]
     Route: 065
  6. BIAXIN XL [Concomitant]
     Route: 065
  7. FLONASE [Concomitant]
     Route: 065
  8. PLAVIX [Concomitant]
     Route: 065
  9. LISINOPRIL [Concomitant]
     Route: 065
  10. LIPITOR [Concomitant]
     Route: 065
  11. METOPROLOL [Concomitant]
     Route: 065
  12. FAMOTIDINE [Concomitant]
     Route: 065
  13. NITROQUICK [Concomitant]
     Route: 065

REACTIONS (3)
  - CARDIAC DISORDER [None]
  - CHEST PAIN [None]
  - MYOCARDIAL INFARCTION [None]
